FAERS Safety Report 7240088-6 (Version None)
Quarter: 2011Q1

REPORT INFORMATION
  Report Type: 
  Country: None (occurrence: None)
  Receive Date: 20110112
  Receipt Date: 20101227
  Transmission Date: 20110831
  Serious: Yes (Other)
  Sender: FDA-Public Use
  Company Number: 2010-4469

PATIENT
  Age: 15 Year
  Sex: Female
  Weight: 28 kg

DRUGS (2)
  1. VITAMIN B12 [Concomitant]
  2. INCRELEX [Suspect]
     Indication: INSULIN-LIKE GROWTH FACTOR DECREASED
     Dosage: 24 UNITS (12 UNITS, 2 IN 1 D), PARENTERAL
     Route: 051
     Dates: start: 20101221, end: 20101225

REACTIONS (8)
  - HEADACHE [None]
  - ABDOMINAL DISTENSION [None]
  - CONSTIPATION [None]
  - NAUSEA [None]
  - DEHYDRATION [None]
  - VOMITING [None]
  - INSOMNIA [None]
  - ABDOMINAL PAIN [None]
